FAERS Safety Report 11492616 (Version 1)
Quarter: 2015Q3

REPORT INFORMATION
  Report Type: Spontaneous
  Country: US (occurrence: US)
  Receive Date: 20150910
  Receipt Date: 20150910
  Transmission Date: 20151125
  Serious: No
  Sender: FDA-Public Use
  Company Number: US-009507513-1509USA002922

PATIENT
  Age: 32 Year
  Sex: Female
  Weight: 95.24 kg

DRUGS (1)
  1. NEXPLANON [Suspect]
     Active Substance: ETONOGESTREL
     Indication: CONTRACEPTION
     Dosage: EVERY 3 YEARS, INSERTED IN LEFT ARM
     Route: 059
     Dates: start: 20150328

REACTIONS (4)
  - Pain in extremity [Unknown]
  - Vein discolouration [Unknown]
  - Vasodilatation [Unknown]
  - Menorrhagia [Unknown]

NARRATIVE: CASE EVENT DATE: 201508
